FAERS Safety Report 5948531-7 (Version None)
Quarter: 2008Q4

REPORT INFORMATION
  Report Type: 
  Country: None (occurrence: None)
  Receive Date: 20081111
  Receipt Date: 20081103
  Transmission Date: 20090506
  Serious: Yes (Hospitalization)
  Sender: FDA-Public Use
  Company Number: ES-AVENTIS-200816035EU

PATIENT
  Age: 78 Year
  Sex: Male

DRUGS (2)
  1. SEGURIL                            /00032601/ [Suspect]
     Route: 042
     Dates: start: 20070210, end: 20070214
  2. SEGURIL                            /00032601/ [Concomitant]
     Route: 048
     Dates: start: 20060423

REACTIONS (1)
  - RENAL FAILURE ACUTE [None]
